FAERS Safety Report 22382247 (Version 1)
Quarter: 2023Q2

REPORT INFORMATION
  Report Type: Spontaneous
  Country: TR (occurrence: TR)
  Receive Date: 20230530
  Receipt Date: 20230530
  Transmission Date: 20230721
  Serious: Yes (Other)
  Sender: FDA-Public Use
  Company Number: TR-002147023-NVSC2023TR122042

PATIENT
  Age: 17 Year
  Sex: Male

DRUGS (3)
  1. SANDOSTATIN [Suspect]
     Active Substance: OCTREOTIDE ACETATE
     Indication: Hypoglycaemia
     Dosage: UNK, (AMPOULE), (EXPIRATION DATE: MAY 2024 OR MAY 2025)
     Route: 065
     Dates: start: 202304
  2. SANDOSTATIN [Suspect]
     Active Substance: OCTREOTIDE ACETATE
     Indication: Insulinoma
  3. SANDOSTATIN [Suspect]
     Active Substance: OCTREOTIDE ACETATE

REACTIONS (4)
  - Epilepsy [Unknown]
  - Hypoglycaemia [Unknown]
  - Product supply issue [Unknown]
  - Product use in unapproved indication [Unknown]
